FAERS Safety Report 14310428 (Version 2)
Quarter: 2018Q1

REPORT INFORMATION
  Report Type: Spontaneous
  Country: DE (occurrence: DE)
  Receive Date: 20171220
  Receipt Date: 20180119
  Transmission Date: 20180509
  Serious: Yes (Hospitalization, Other)
  Sender: FDA-Public Use
  Company Number: DE-BAUSCH-BL-2017-034358

PATIENT
  Age: 59 Year
  Sex: Female

DRUGS (10)
  1. QUETIAPINE. [Suspect]
     Active Substance: QUETIAPINE
     Indication: HASHIMOTO^S ENCEPHALOPATHY
     Dosage: UPTO 200 MG/DAY
     Route: 065
     Dates: start: 2016, end: 201609
  2. LORAZEPAM. [Suspect]
     Active Substance: LORAZEPAM
     Indication: HASHIMOTO^S ENCEPHALOPATHY
     Dosage: UPTO 5 MG/DAY
     Route: 065
     Dates: start: 2016, end: 201609
  3. CITALOPRAM [Suspect]
     Active Substance: CITALOPRAM HYDROBROMIDE
     Indication: HASHIMOTO^S ENCEPHALOPATHY
     Dosage: UPTO 20 MG/DAY
     Route: 065
     Dates: start: 2016, end: 201609
  4. METHYLPREDNISOLONE. [Suspect]
     Active Substance: METHYLPREDNISOLONE
     Indication: HASHIMOTO^S ENCEPHALOPATHY
     Dosage: 5 MG X 500 MG FOR FIVE CONSECUTIVE DAYS
     Route: 065
     Dates: start: 2016, end: 201609
  5. ARIPIPRAZOLE. [Suspect]
     Active Substance: ARIPIPRAZOLE
     Indication: HASHIMOTO^S ENCEPHALOPATHY
     Dosage: UPTO 15 MG/DAY
     Route: 065
     Dates: start: 2016, end: 201609
  6. METHYLPREDNISOLONE. [Suspect]
     Active Substance: METHYLPREDNISOLONE
     Indication: HASHIMOTO^S ENCEPHALOPATHY
  7. AMISULPRIDE [Suspect]
     Active Substance: AMISULPRIDE
     Indication: HASHIMOTO^S ENCEPHALOPATHY
     Dosage: UP TO 400 MG/DAY
     Route: 065
     Dates: start: 2016, end: 201609
  8. RISPERIDONE. [Suspect]
     Active Substance: RISPERIDONE
     Indication: HASHIMOTO^S ENCEPHALOPATHY
     Dosage: UPTO 4 MG/DAY
     Route: 065
     Dates: start: 2016, end: 201609
  9. VENLAFAXINE [Suspect]
     Active Substance: VENLAFAXINE HYDROCHLORIDE
     Indication: HASHIMOTO^S ENCEPHALOPATHY
     Dosage: UPTO 150 MG/DAY
     Route: 065
     Dates: start: 2016, end: 201609
  10. FLUPENTIXOL [Suspect]
     Active Substance: FLUPENTIXOL
     Indication: HASHIMOTO^S ENCEPHALOPATHY
     Dosage: UPTO 1.5 MG/DAY
     Route: 065
     Dates: start: 2016, end: 201609

REACTIONS (3)
  - Cognitive disorder [Recovering/Resolving]
  - Treatment failure [Unknown]
  - Micturition disorder [Recovering/Resolving]
